FAERS Safety Report 5054132-8 (Version None)
Quarter: 2006Q3

REPORT INFORMATION
  Report Type: 
  Country: None (occurrence: None)
  Receive Date: 20060713
  Receipt Date: 20060628
  Transmission Date: 20061208
  Serious: Yes (Hospitalization, Other)
  Sender: FDA-Public Use
  Company Number: 2006JP001166

PATIENT
  Age: 74 Year
  Sex: Female
  Weight: 46.2 kg

DRUGS (5)
  1. PROGRAF [Suspect]
     Indication: RHEUMATOID ARTHRITIS
     Dosage: 1 MG, UID/QD, ORAL
     Route: 048
     Dates: start: 20060316, end: 20060413
  2. PREDNISOLONE [Concomitant]
  3. RHEUMATREX [Concomitant]
  4. NABOAL SLOW RELEASE CAPSULES [Concomitant]
  5. EVISTA [Concomitant]

REACTIONS (12)
  - ABASIA [None]
  - BLOOD CREATINE PHOSPHOKINASE INCREASED [None]
  - BLOOD SODIUM DECREASED [None]
  - C-REACTIVE PROTEIN [None]
  - FEELING ABNORMAL [None]
  - GAIT DISTURBANCE [None]
  - HYPERCREATININAEMIA [None]
  - HYPOKALAEMIA [None]
  - MUSCLE DISORDER [None]
  - MUSCULAR WEAKNESS [None]
  - NERVOUS SYSTEM DISORDER [None]
  - WHITE BLOOD CELL COUNT INCREASED [None]
